FAERS Safety Report 4931386-7 (Version None)
Quarter: 2006Q1

REPORT INFORMATION
  Report Type: 
  Country: None (occurrence: None)
  Receive Date: 20060303
  Receipt Date: 20060120
  Transmission Date: 20060701
  Serious: Yes (Hospitalization, Disabling, Other)
  Sender: FDA-Public Use
  Company Number: PHFR2006GB00622

PATIENT
  Age: 53 Year
  Sex: Female
  Weight: 100 kg

DRUGS (2)
  1. ZOMETA [Suspect]
     Indication: METASTASES TO BONE
     Dosage: 4 MG, QMO
     Route: 042
     Dates: start: 20031201, end: 20050701
  2. ARIMIDEX [Concomitant]
     Indication: BREAST CANCER
     Dosage: 1MG DAILY
     Route: 048
     Dates: start: 20040101, end: 20060101

REACTIONS (2)
  - BONE DISORDER [None]
  - OSTEONECROSIS [None]
